FAERS Safety Report 7094903-X (Version None)
Quarter: 2010Q4

REPORT INFORMATION
  Report Type: 
  Country: None (occurrence: None)
  Receive Date: 20101111
  Receipt Date: 20101101
  Transmission Date: 20110411
  Serious: Yes (Hospitalization)
  Sender: FDA-Public Use
  Company Number: US-BIOGENIDEC-2010BI033710

PATIENT
  Age: 58 Year
  Sex: Male

DRUGS (2)
  1. TYSABRI [Suspect]
     Indication: MULTIPLE SCLEROSIS
     Route: 042
     Dates: start: 20070607, end: 20080924
  2. TYSABRI [Suspect]
     Route: 042
     Dates: start: 20090220

REACTIONS (4)
  - BRONCHITIS [None]
  - DIPLOPIA [None]
  - MULTIPLE SCLEROSIS [None]
  - WEIGHT DECREASED [None]
